FAERS Safety Report 21956869 (Version 2)
Quarter: 2024Q2

REPORT INFORMATION
  Report Type: Spontaneous
  Country: FR (occurrence: FR)
  Receive Date: 20230206
  Receipt Date: 20240625
  Transmission Date: 20240716
  Serious: Yes (Death, Life-Threatening, Other)
  Sender: FDA-Public Use
  Company Number: None

PATIENT
  Age: 92 Year
  Sex: Female

DRUGS (4)
  1. HEPARIN CALCIUM [Interacting]
     Active Substance: HEPARIN CALCIUM
     Indication: Thrombosis prophylaxis
     Dosage: 1 DF, BID
     Dates: start: 20220201, end: 20220205
  2. LOVENOX [Interacting]
     Active Substance: ENOXAPARIN SODIUM
     Indication: Thrombosis prophylaxis
     Dosage: 1 DF BID
     Dates: start: 20220131, end: 20220131
  3. FUROSEMIDE [Concomitant]
     Active Substance: FUROSEMIDE
     Dosage: UNK
     Route: 042
     Dates: start: 20240507, end: 20240521
  4. LEVOTHYROXINE [Concomitant]
     Active Substance: LEVOTHYROXINE\LEVOTHYROXINE SODIUM
     Dosage: SCORED TABLET
     Dates: end: 20240522

REACTIONS (3)
  - Peripheral ischaemia [Fatal]
  - Ischaemic stroke [Fatal]
  - Heparin-induced thrombocytopenia [Recovering/Resolving]

NARRATIVE: CASE EVENT DATE: 20220205
